FAERS Safety Report 16634524 (Version 4)
Quarter: 2019Q4

REPORT INFORMATION
  Report Type: Report from Study
  Country: US (occurrence: US)
  Receive Date: 20190726
  Receipt Date: 20191223
  Transmission Date: 20200122
  Serious: Yes (Death, Life-Threatening, Hospitalization, Other)
  Sender: FDA-Public Use
  Company Number: US-BIOGEN-2019BI00764518

PATIENT
  Sex: Male

DRUGS (1)
  1. TYSABRI [Suspect]
     Active Substance: NATALIZUMAB
     Indication: MULTIPLE SCLEROSIS
     Route: 065
     Dates: start: 20140513, end: 20190529

REACTIONS (6)
  - Diabetes mellitus [Unknown]
  - Multiple sclerosis [Fatal]
  - Seizure [Unknown]
  - Terminal state [Unknown]
  - Acute kidney injury [Unknown]
  - Vomiting [Unknown]
